FAERS Safety Report 7312109-3 (Version None)
Quarter: 2011Q1

REPORT INFORMATION
  Report Type: 
  Country: None (occurrence: None)
  Receive Date: 20110224
  Receipt Date: 20110210
  Transmission Date: 20110831
  Serious: Yes (Other)
  Sender: FDA-Public Use
  Company Number: PHHY2011JP10815

PATIENT
  Age: 62 Year
  Sex: Male

DRUGS (2)
  1. METHOTREXATE [Concomitant]
     Dosage: 8 MG PER WEEK
  2. ISONIAZID [Suspect]
     Indication: PROPHYLAXIS
     Dosage: 300 MG, QD

REACTIONS (7)
  - FATIGUE [None]
  - C-REACTIVE PROTEIN INCREASED [None]
  - WHITE BLOOD CELL COUNT INCREASED [None]
  - CARDIOTHORACIC RATIO INCREASED [None]
  - BODY TEMPERATURE DECREASED [None]
  - PERICARDITIS [None]
  - PERICARDIAL EFFUSION [None]
